FAERS Safety Report 20813796 (Version 1)
Quarter: 2022Q2

REPORT INFORMATION
  Report Type: Spontaneous
  Country: US (occurrence: None)
  Receive Date: 20220511
  Receipt Date: 20220511
  Transmission Date: 20220721
  Serious: Yes (Death)
  Sender: FDA-Public Use
  Company Number: US-ROCHE-3090078

PATIENT
  Sex: Male
  Weight: 48.578 kg

DRUGS (1)
  1. ZELBORAF [Suspect]
     Active Substance: VEMURAFENIB
     Indication: Langerhans^ cell histiocytosis
     Dosage: 240 MG 8 TABLETS, EVERY 12 HOURS
     Route: 048
     Dates: end: 20220218

REACTIONS (3)
  - Completed suicide [Fatal]
  - Off label use [Fatal]
  - Mass [Unknown]
